FAERS Safety Report 6019946-6 (Version None)
Quarter: 2008Q4

REPORT INFORMATION
  Report Type: 
  Country: None (occurrence: None)
  Receive Date: 20081223
  Receipt Date: 20081215
  Transmission Date: 20090506
  Serious: Yes (Hospitalization)
  Sender: FDA-Public Use
  Company Number: 233029K08USA

PATIENT
  Age: 45 Year
  Sex: Female
  Weight: 57 kg

DRUGS (4)
  1. REBIF [Suspect]
     Indication: MULTIPLE SCLEROSIS
     Dosage: 8.8 MCG, 3 IN 1 WEEKS, SUBCUTANEOUS; 8.8 MCG,
     Route: 058
     Dates: start: 20060322, end: 20081002
  2. REBIF [Suspect]
     Indication: MULTIPLE SCLEROSIS
     Dosage: 8.8 MCG, 3 IN 1 WEEKS, SUBCUTANEOUS; 8.8 MCG,
     Route: 058
     Dates: start: 20081205
  3. SOLU-MEDROL [Suspect]
     Indication: MULTIPLE SCLEROSIS
     Dates: start: 20070301
  4. ZANTAC 150 [Concomitant]

REACTIONS (7)
  - ABASIA [None]
  - ANAPHYLACTIC REACTION [None]
  - ANXIETY [None]
  - CONDITION AGGRAVATED [None]
  - HYPOAESTHESIA [None]
  - INJECTION SITE EXTRAVASATION [None]
  - MULTIPLE SCLEROSIS [None]
